FAERS Safety Report 8534288-2 (Version None)
Quarter: 2012Q3

REPORT INFORMATION
  Report Type: 
  Country: None (occurrence: None)
  Receive Date: 20120724
  Receipt Date: 20120716
  Transmission Date: 20120928
  Serious: Yes (Other)
  Sender: FDA-Public Use
  Company Number: US-BRISTOL-MYERS SQUIBB COMPANY-16769846

PATIENT

DRUGS (2)
  1. METFORMIN HCL [Concomitant]
  2. KOMBIGLYZE XR [Suspect]

REACTIONS (1)
  - HAEMOLYTIC ANAEMIA [None]
